FAERS Safety Report 19945814 (Version 1)
Quarter: 2021Q4

REPORT INFORMATION
  Report Type: Spontaneous
  Country: US (occurrence: US)
  Receive Date: 20211012
  Receipt Date: 20211012
  Transmission Date: 20220303
  Serious: No
  Sender: FDA-Public Use
  Company Number: US-MYOVANT SCIENCES GMBH-2021MYSCI0800428

PATIENT
  Sex: Male

DRUGS (2)
  1. ORGOVYX [Suspect]
     Active Substance: RELUGOLIX
     Indication: Prostate cancer
     Dosage: 360 MILLIGRAM, ONE TIME DOSE
     Route: 048
     Dates: start: 20210607, end: 20210607
  2. ORGOVYX [Suspect]
     Active Substance: RELUGOLIX
     Dosage: 120 UNK, QD
     Route: 048
     Dates: start: 20210608

REACTIONS (3)
  - Hypotonia [Unknown]
  - Arthralgia [Unknown]
  - Fatigue [Unknown]
